FAERS Safety Report 7804950-5 (Version None)
Quarter: 2011Q4

REPORT INFORMATION
  Report Type: 
  Country: None (occurrence: None)
  Receive Date: 20111010
  Receipt Date: 20110927
  Transmission Date: 20120403
  Serious: Yes (Other)
  Sender: FDA-Public Use
  Company Number: PHHY2011BR86646

PATIENT
  Age: 75 Year
  Sex: Male

DRUGS (7)
  1. CILAZAPRIL [Concomitant]
     Dosage: 5 MG/DAY
  2. INDAPAMIDE [Concomitant]
     Dosage: 1.5 MG/DAY
  3. SIMVASTATIN [Suspect]
     Dosage: 20 MG/DAY
  4. METFORMIN HYDROCHLORIDE [Suspect]
     Dosage: 1700 MG/DAY
  5. INSULIN NOVOLIN [Concomitant]
     Dosage: 14 IU/DAY
  6. EZETIMIBE [Concomitant]
     Dosage: 10 MG/DAY
  7. NITRENDIPINE [Concomitant]
     Dosage: 40 MG/DAY

REACTIONS (4)
  - BLOOD PRESSURE INCREASED [None]
  - BLOOD UREA INCREASED [None]
  - ATRIOVENTRICULAR BLOCK [None]
  - GLYCOSYLATED HAEMOGLOBIN INCREASED [None]
